FAERS Safety Report 5061442-7 (Version None)
Quarter: 2006Q3

REPORT INFORMATION
  Report Type: 
  Country: None (occurrence: None)
  Receive Date: 20060719
  Receipt Date: 20060719
  Transmission Date: 20061208
  Serious: Yes (Hospitalization)
  Sender: FDA-Public Use
  Company Number: None

PATIENT
  Age: 69 Year
  Sex: Male

DRUGS (10)
  1. TRAZODONE HCL [Suspect]
     Indication: DEPRESSION
     Dosage: 150 MG QHS
     Dates: start: 20011201
  2. ALPRAZOLAM [Suspect]
     Indication: ANXIETY
     Dosage: 0.5 MG TID
     Dates: start: 20020301
  3. METOPROLOL TARTRATE [Concomitant]
  4. GLYBURIDE [Concomitant]
  5. SYNTHROID [Concomitant]
  6. NEORAL [Concomitant]
  7. MYCOPHENOLATE [Concomitant]
  8. OSCAL [Concomitant]
  9. HYOSCYAMINE [Concomitant]
  10. PAROXETINE HCL [Suspect]
     Indication: DEPRESSION
     Dosage: 40MG QD
     Dates: start: 20011201

REACTIONS (1)
  - SYNCOPE [None]
